FAERS Safety Report 7571872-7 (Version None)
Quarter: 2011Q2

REPORT INFORMATION
  Report Type: 
  Country: None (occurrence: None)
  Receive Date: 20110624
  Receipt Date: 20100519
  Transmission Date: 20111010
  Serious: No
  Sender: FDA-Public Use
  Company Number: A0860712A

PATIENT
  Age: 59 Year
  Sex: Female

DRUGS (3)
  1. LEVOTHYROXINE SODIUM [Concomitant]
  2. VERAMYST [Suspect]
     Route: 045
     Dates: start: 20100511, end: 20100518
  3. SPIRIVA [Concomitant]

REACTIONS (4)
  - ADVERSE DRUG REACTION [None]
  - HEADACHE [None]
  - EAR PAIN [None]
  - OROPHARYNGEAL PAIN [None]
